FAERS Safety Report 6260978-0 (Version None)
Quarter: 2009Q3

REPORT INFORMATION
  Report Type: 
  Country: None (occurrence: None)
  Receive Date: 20090709
  Receipt Date: 20070602
  Transmission Date: 20100115
  Serious: Yes (Hospitalization)
  Sender: FDA-Public Use
  Company Number: US-ASTRAZENECA-2006UW25282

PATIENT
  Age: 18842 Day
  Sex: Male
  Weight: 137 kg

DRUGS (26)
  1. SEROQUEL [Suspect]
     Indication: DEPRESSION
     Route: 048
     Dates: start: 20010101, end: 20060101
  2. SEROQUEL [Suspect]
     Indication: ANXIETY
     Route: 048
     Dates: start: 20010101, end: 20060101
  3. SEROQUEL [Suspect]
     Indication: SLEEP DISORDER
     Route: 048
     Dates: start: 20010101, end: 20060101
  4. SEROQUEL [Suspect]
     Dosage: 25-450MG
     Route: 048
     Dates: start: 20040109
  5. SEROQUEL [Suspect]
     Dosage: 25-450MG
     Route: 048
     Dates: start: 20040109
  6. SEROQUEL [Suspect]
     Dosage: 25-450MG
     Route: 048
     Dates: start: 20040109
  7. WELLBUTRIN [Concomitant]
  8. EFFEXSUR [Concomitant]
  9. LIPITOR [Concomitant]
     Indication: HYPERLIPIDAEMIA
     Route: 048
  10. ACCUPRIL [Concomitant]
     Indication: HYPERTENSION
     Route: 048
  11. LEXAPRO [Concomitant]
     Route: 048
  12. RISPERDAL [Concomitant]
     Route: 048
  13. CEPHALEXIN [Concomitant]
     Indication: CELLULITIS
     Route: 048
  14. IBUPROFEN TABLETS [Concomitant]
  15. LOPID [Concomitant]
     Indication: HYPERTRIGLYCERIDAEMIA
     Route: 048
  16. LOPID [Concomitant]
     Indication: HYPERLIPIDAEMIA
     Route: 048
  17. ASPIRIN [Concomitant]
     Route: 048
  18. PAXIL CR [Concomitant]
     Indication: DEPRESSION
     Route: 048
  19. ZOLOFT [Concomitant]
     Route: 048
  20. TRAZODONE HCL [Concomitant]
     Dosage: STRENGTH - 50 MG AND 150 MG
  21. AMITRIPTYLINE [Concomitant]
     Indication: SLEEP DISORDER
  22. AMITRIPTYLINE [Concomitant]
     Indication: DEPRESSION
  23. AMITRIPTYLINE [Concomitant]
     Indication: BACK PAIN
  24. NAPROSYN [Concomitant]
     Indication: BACK PAIN
  25. PROZAC [Concomitant]
     Indication: DEPRESSION
  26. REMERON [Concomitant]
     Indication: DEPRESSION

REACTIONS (5)
  - ANGINA PECTORIS [None]
  - ANXIETY [None]
  - HYPERGLYCAEMIA [None]
  - MUSCULOSKELETAL CHEST PAIN [None]
  - TYPE 2 DIABETES MELLITUS [None]
